FAERS Safety Report 13439168 (Version 1)
Quarter: 2017Q2

REPORT INFORMATION
  Report Type: Spontaneous
  Country: DK (occurrence: DK)
  Receive Date: 20170413
  Receipt Date: 20170413
  Transmission Date: 20170830
  Serious: Yes (Hospitalization, Disabling)
  Sender: FDA-Public Use
  Company Number: DK-JNJFOC-20170413240

PATIENT
  Age: 81 Year
  Sex: Female

DRUGS (10)
  1. XARELTO [Suspect]
     Active Substance: RIVAROXABAN
     Indication: ATRIAL FIBRILLATION
     Route: 048
     Dates: start: 20150320, end: 20160818
  2. CALCITRATE [Concomitant]
     Active Substance: CALCIUM CITRATE
     Route: 065
  3. FISH OIL [Concomitant]
     Active Substance: FISH OIL
     Route: 065
  4. PRADAXA [Concomitant]
     Active Substance: DABIGATRAN ETEXILATE MESYLATE
     Route: 065
  5. MOXONIDIN [Concomitant]
     Active Substance: MOXONIDINE
     Route: 065
  6. IBUMETIN [Concomitant]
     Active Substance: IBUPROFEN
     Route: 065
  7. CALCIUM PLUS VITAMIN D [Concomitant]
     Active Substance: CALCIUM\VITAMIN D
     Route: 065
  8. FURIX [Concomitant]
     Active Substance: FUROSEMIDE
     Route: 065
  9. PAMOL [Concomitant]
     Active Substance: ACETAMINOPHEN
     Route: 065
  10. KALEORID [Concomitant]
     Active Substance: POTASSIUM CHLORIDE
     Indication: PRODUCT USED FOR UNKNOWN INDICATION
     Route: 065

REACTIONS (9)
  - Neck pain [Unknown]
  - Wheelchair user [Unknown]
  - Surgery [Unknown]
  - Hemiparesis [Unknown]
  - Radiation associated pain [Unknown]
  - Spinal cord oedema [Unknown]
  - Quadriplegia [Unknown]
  - Spinal cord haematoma [Recovered/Resolved with Sequelae]
  - Subdural haematoma [Recovered/Resolved with Sequelae]

NARRATIVE: CASE EVENT DATE: 20160809
